FAERS Safety Report 21177876 (Version 6)
Quarter: 2023Q4

REPORT INFORMATION
  Report Type: Spontaneous
  Country: US (occurrence: US)
  Receive Date: 20220805
  Receipt Date: 20231228
  Transmission Date: 20240110
  Serious: No
  Sender: FDA-Public Use
  Company Number: US-PFIZER INC-PV202200037120

PATIENT
  Age: 66 Year
  Sex: Female

DRUGS (3)
  1. INLYTA [Suspect]
     Active Substance: AXITINIB
     Dosage: 5 MG, 2X/DAY
  2. INLYTA [Suspect]
     Active Substance: AXITINIB
     Dosage: 1 MG
     Dates: end: 202301
  3. INLYTA [Suspect]
     Active Substance: AXITINIB
     Dosage: 1 MG TWICE DAILY

REACTIONS (10)
  - Thyroid hormones increased [Recovered/Resolved]
  - Hypertension [Unknown]
  - Diarrhoea [Unknown]
  - Nausea [Unknown]
  - Fatigue [Unknown]
  - Retching [Recovered/Resolved]
  - Laboratory test abnormal [Unknown]
  - Proteinuria [Unknown]
  - Dry mouth [Unknown]
  - Off label use [Unknown]
